FAERS Safety Report 8092771-0 (Version None)
Quarter: 2012Q1

REPORT INFORMATION
  Report Type: 
  Country: None (occurrence: None)
  Receive Date: 20120128
  Receipt Date: 20110813
  Transmission Date: 20120608
  Serious: No
  Sender: FDA-Public Use
  Company Number: US-ABBOTT-11P-163-0846152-00

PATIENT
  Age: 53 Year
  Sex: Female

DRUGS (9)
  1. XANAX [Concomitant]
     Indication: ANXIETY
     Dosage: UP TO 3 TABS DAILY AS NEEDED
  2. HUMIRA [Suspect]
     Indication: CROHN'S DISEASE
     Dates: start: 20110313, end: 20110410
  3. DIOVAN [Concomitant]
     Indication: PRODUCT USED FOR UNKNOWN INDICATION
  4. TRAZODONE HCL [Concomitant]
     Indication: ABDOMINAL PAIN
     Dosage: UP TO 2 TABS DAILY
  5. XANAX [Concomitant]
     Indication: PANIC ATTACK
  6. AMLODIPINE [Concomitant]
     Indication: CARDIAC DISORDER
  7. KLONOPIN [Concomitant]
     Indication: ANXIETY
  8. HYDROCHLOROTHIAZIDE [Concomitant]
     Indication: FLUID RETENTION
  9. XANAX [Concomitant]
     Indication: STRESS

REACTIONS (6)
  - PAIN IN EXTREMITY [None]
  - MOBILITY DECREASED [None]
  - MENTAL IMPAIRMENT [None]
  - FEELING ABNORMAL [None]
  - ARTHRALGIA [None]
  - TREMOR [None]
